FAERS Safety Report 21998556 (Version 1)
Quarter: 2023Q1

REPORT INFORMATION
  Report Type: Spontaneous
  Country: CL (occurrence: CL)
  Receive Date: 20230216
  Receipt Date: 20230216
  Transmission Date: 20230418
  Serious: Yes (Congenital Anomaly, Other)
  Sender: FDA-Public Use
  Company Number: CL-STRIDES ARCOLAB LIMITED-2023SP002349

PATIENT
  Age: 36 Year
  Sex: Female

DRUGS (2)
  1. HYDRALAZINE HYDROCHLORIDE [Suspect]
     Active Substance: HYDRALAZINE HYDROCHLORIDE
     Indication: Abortion spontaneous
     Dosage: 12.5 MILLIGRAM, QID (50 MILLIGRAM; PER DAY; 12.5 MG FOUR TIMES A DAY)
     Route: 048
  2. HYDRALAZINE HYDROCHLORIDE [Suspect]
     Active Substance: HYDRALAZINE HYDROCHLORIDE
     Indication: Prophylaxis

REACTIONS (2)
  - Prader-Willi syndrome [Unknown]
  - Maternal exposure during pregnancy [Unknown]
